FAERS Safety Report 4582475-0 (Version None)
Quarter: 2005Q1

REPORT INFORMATION
  Report Type: 
  Country: None (occurrence: None)
  Receive Date: 20050211
  Receipt Date: 20050211
  Transmission Date: 20050727
  Serious: Yes (Other)
  Sender: FDA-Public Use
  Company Number: None

PATIENT
  Age: 16 Year
  Sex: Female

DRUGS (2)
  1. LORATADINE [Suspect]
     Indication: HYPERSENSITIVITY
     Dosage: ORAL
     Route: 048
     Dates: start: 20040914, end: 20050101
  2. ANTI-HISTAMINE TAB [Suspect]
     Indication: HYPERSENSITIVITY
     Dosage: 10 MILLIGRAM
     Dates: start: 20040914, end: 20050101

REACTIONS (1)
  - GALACTORRHOEA [None]
